FAERS Safety Report 7957052-1 (Version None)
Quarter: 2011Q4

REPORT INFORMATION
  Report Type: 
  Country: None (occurrence: None)
  Receive Date: 20111130
  Receipt Date: 20111116
  Transmission Date: 20120403
  Serious: Yes (Other)
  Sender: FDA-Public Use
  Company Number: USA/UKI/11/0022080

PATIENT
  Age: 52 Year
  Sex: Female

DRUGS (12)
  1. ENALAPRIL MALEATE [Suspect]
     Indication: PRODUCT USED FOR UNKNOWN INDICATION
  2. DIPYRIDAMOLE [Concomitant]
  3. CITALOPRAM HYDROBROMIDE [Suspect]
     Indication: PRODUCT USED FOR UNKNOWN INDICATION
  4. CARBAMAZEPINE [Suspect]
     Indication: EPILEPSY
  5. GLICLAZIDE (GLICLAZIDE) [Concomitant]
  6. LAMOTRIGINE [Suspect]
     Indication: EPILEPSY
  7. ATORVASTATIN [Concomitant]
  8. ASPIRIN [Concomitant]
  9. BENDROFLUMETHIAZIDE (BENDROFLUMETHIAZIDE) [Suspect]
     Indication: PRODUCT USED FOR UNKNOWN INDICATION
  10. AMLODIPINE BESYLATE [Suspect]
     Indication: PRODUCT USED FOR UNKNOWN INDICATION
  11. ATENOLOL [Suspect]
     Indication: PRODUCT USED FOR UNKNOWN INDICATION
  12. METFORMIN HCL [Suspect]
     Indication: PRODUCT USED FOR UNKNOWN INDICATION

REACTIONS (15)
  - MUSCULAR WEAKNESS [None]
  - BLOOD ALBUMIN DECREASED [None]
  - BLOOD GLUCOSE INCREASED [None]
  - CONFUSIONAL STATE [None]
  - HYPONATRAEMIA [None]
  - HYPERAMMONAEMIA [None]
  - BLOOD PRESSURE INCREASED [None]
  - VULVOVAGINAL DISCOMFORT [None]
  - HYPOKALAEMIA [None]
  - NEUTROPHILIA [None]
  - HYPERREFLEXIA [None]
  - LETHARGY [None]
  - COORDINATION ABNORMAL [None]
  - BLOOD LACTIC ACID INCREASED [None]
  - URINARY TRACT INFECTION ENTEROCOCCAL [None]
